FAERS Safety Report 6413590-4 (Version None)
Quarter: 2009Q4

REPORT INFORMATION
  Report Type: 
  Country: None (occurrence: None)
  Receive Date: 20091023
  Receipt Date: 20091023
  Transmission Date: 20100525
  Serious: Yes (Other)
  Sender: FDA-Public Use
  Company Number: None

PATIENT
  Sex: Male
  Weight: 90.7194 kg

DRUGS (1)
  1. FENOFIBRATE [Suspect]
     Indication: LIPIDS INCREASED
     Dosage: 134 MG ONE PER DAY PO
     Route: 048
     Dates: start: 20090521, end: 20090710

REACTIONS (3)
  - AMNESIA [None]
  - JOINT SWELLING [None]
  - THROAT IRRITATION [None]
